FAERS Safety Report 20403448 (Version 4)
Quarter: 2022Q1

REPORT INFORMATION
  Report Type: Report from Study
  Country: TW (occurrence: TW)
  Receive Date: 20220131
  Receipt Date: 20220310
  Transmission Date: 20220424
  Serious: Yes (Hospitalization, Other)
  Sender: FDA-Public Use
  Company Number: TW-JNJFOC-20220146743

PATIENT
  Age: 45 Year
  Sex: Male
  Weight: 145 kg

DRUGS (55)
  1. SIMPONI [Suspect]
     Active Substance: GOLIMUMAB
     Indication: Psoriatic arthropathy
     Route: 058
     Dates: start: 20180621
  2. ARHEUMA [Concomitant]
     Indication: Psoriatic arthropathy
     Route: 048
     Dates: start: 20171220
  3. PREDONINE [Concomitant]
     Active Substance: PREDNISOLONE
     Indication: Psoriatic arthropathy
     Route: 048
     Dates: start: 20190917
  4. BOKEY [Concomitant]
     Indication: Psoriatic arthropathy
     Route: 048
     Dates: start: 20190625, end: 20220131
  5. PIPERACILLIN SODIUM\TAZOBACTAM SODIUM [Concomitant]
     Active Substance: PIPERACILLIN SODIUM\TAZOBACTAM SODIUM
     Dates: start: 20220124, end: 20220126
  6. PIPERACILLIN SODIUM\TAZOBACTAM SODIUM [Concomitant]
     Active Substance: PIPERACILLIN SODIUM\TAZOBACTAM SODIUM
     Dates: start: 20220126, end: 20220126
  7. SINTRIX [Concomitant]
     Dates: start: 20220121, end: 20220124
  8. MAXIPIME [Concomitant]
     Active Substance: CEFEPIME HYDROCHLORIDE
     Dates: start: 20220126, end: 20220130
  9. SUPECEF [Concomitant]
     Dates: start: 20220203, end: 20220207
  10. MEROPENEM [Concomitant]
     Active Substance: MEROPENEM
     Dates: start: 20220126, end: 20220214
  11. INVANZ [Concomitant]
     Active Substance: ERTAPENEM SODIUM
     Dates: start: 20220207, end: 20220208
  12. FENTICONAZOLE NITRATE [Concomitant]
     Active Substance: FENTICONAZOLE NITRATE
     Dates: start: 20220210
  13. TARGOCID [Concomitant]
     Active Substance: TEICOPLANIN
     Dates: start: 20220124, end: 20220211
  14. PARAMOL [PARACETAMOL] [Concomitant]
     Dates: start: 20220121, end: 20220206
  15. ULTRACET [Concomitant]
     Active Substance: ACETAMINOPHEN\TRAMADOL HYDROCHLORIDE
     Route: 048
     Dates: start: 20220202, end: 20220217
  16. TRAMOL [Concomitant]
     Route: 048
     Dates: start: 20220208, end: 20220217
  17. COLCHICINE [Concomitant]
     Active Substance: COLCHICINE
     Route: 048
     Dates: start: 20220124, end: 20220215
  18. FUROSEMIDE [Concomitant]
     Active Substance: FUROSEMIDE
     Route: 042
     Dates: start: 20220120, end: 20220203
  19. LASIX [Concomitant]
     Active Substance: FUROSEMIDE
     Route: 048
     Dates: start: 20220124, end: 20220216
  20. BISOPROLOL FUMARATE [Concomitant]
     Active Substance: BISOPROLOL FUMARATE
     Route: 048
     Dates: start: 20220211
  21. DOXAZOSIN MESYLATE [Concomitant]
     Active Substance: DOXAZOSIN MESYLATE
     Route: 048
     Dates: start: 20220215
  22. EDARBI [Concomitant]
     Active Substance: AZILSARTAN KAMEDOXOMIL
     Route: 048
     Dates: start: 20220207
  23. NORVASC [Concomitant]
     Active Substance: AMLODIPINE BESYLATE
     Route: 048
     Dates: start: 20220209
  24. PLAVIX [Concomitant]
     Active Substance: CLOPIDOGREL BISULFATE
     Route: 048
     Dates: start: 20220217
  25. BOKEY [Concomitant]
     Route: 048
     Dates: start: 20211208, end: 20220131
  26. TRANSAMIN [Concomitant]
     Active Substance: TRANEXAMIC ACID
     Dates: start: 20220121, end: 20220124
  27. HYDROXOCOBALAMIN [Concomitant]
     Active Substance: HYDROXOCOBALAMIN
     Dates: start: 20220125, end: 20220125
  28. SODIUM CHLORIDE [Concomitant]
     Active Substance: SODIUM CHLORIDE
     Dates: start: 20220119, end: 20220120
  29. TAITA [Concomitant]
     Dosage: 1200 ML OR 400 ML
     Dates: start: 20220119, end: 20220130
  30. CALCIUM CHLORIDE\POTASSIUM CHLORIDE\SODIUM CHLORIDE\SODIUM LACTATE [Concomitant]
     Active Substance: CALCIUM CHLORIDE\POTASSIUM CHLORIDE\SODIUM CHLORIDE\SODIUM LACTATE
     Dates: start: 20220125, end: 20220126
  31. K-GLU [Concomitant]
     Route: 048
     Dates: start: 20220126, end: 20220130
  32. MAGNESIUM SULFATE [Concomitant]
     Active Substance: MAGNESIUM SULFATE
     Dates: start: 20220126, end: 20220217
  33. RADI K [Concomitant]
     Route: 048
     Dates: start: 20220205, end: 20220207
  34. ALINAM [Concomitant]
     Route: 048
     Dates: start: 20211208, end: 20220216
  35. VITAMIN B1 [Concomitant]
     Active Substance: THIAMINE HYDROCHLORIDE
     Dates: start: 20220125, end: 20220127
  36. METHYLCOBALAMIN [Concomitant]
     Active Substance: METHYLCOBALAMIN
     Route: 048
     Dates: start: 20220216
  37. PANTOPRAZOLE SODIUM [Concomitant]
     Active Substance: PANTOPRAZOLE SODIUM
     Route: 042
     Dates: start: 20220119, end: 20220124
  38. NEXIUM [Concomitant]
     Active Substance: ESOMEPRAZOLE MAGNESIUM
     Route: 048
     Dates: start: 20220125
  39. SMECTA [Concomitant]
     Active Substance: MONTMORILLONITE
     Route: 048
     Dates: start: 20220124, end: 20220208
  40. IMOLEX [Concomitant]
     Route: 048
     Dates: start: 20220126, end: 20220126
  41. METOCLOPRAMIDE HYDROCHLORIDE [Concomitant]
     Active Substance: METOCLOPRAMIDE HYDROCHLORIDE
     Route: 042
     Dates: start: 20220122, end: 20220123
  42. novamin [Concomitant]
     Dates: start: 20220127, end: 20220127
  43. BROMAZEPAM [Concomitant]
     Active Substance: BROMAZEPAM
     Route: 048
     Dates: start: 20220202, end: 20220214
  44. PREDONINE [Concomitant]
     Active Substance: PREDNISOLONE
     Route: 048
     Dates: start: 20211208, end: 20220208
  45. SOLU-MEDROL [Concomitant]
     Active Substance: METHYLPREDNISOLONE SODIUM SUCCINATE
     Route: 042
     Dates: start: 20220208, end: 20220214
  46. HUMULIN R [Concomitant]
     Active Substance: INSULIN HUMAN
     Route: 042
     Dates: start: 20220124, end: 20220124
  47. COMBIVENT [Concomitant]
     Active Substance: ALBUTEROL SULFATE\IPRATROPIUM BROMIDE
     Dates: start: 20220203
  48. ACTEIN [Concomitant]
     Dates: start: 20220207
  49. DIPHENHYDRAMINE HYDROCHLORIDE [Concomitant]
     Active Substance: DIPHENHYDRAMINE HYDROCHLORIDE
     Route: 042
     Dates: start: 20220120, end: 20220124
  50. ARHEUMA [Concomitant]
     Route: 048
     Dates: start: 20220105, end: 20220215
  51. ICHDERM [Concomitant]
  52. SINPHARDERM [Concomitant]
     Dates: start: 20220210
  53. SERTACONAZOLE NITRATE [Concomitant]
     Active Substance: SERTACONAZOLE NITRATE
     Dates: start: 20220210
  54. CLOBETASOL [Concomitant]
     Active Substance: CLOBETASOL
     Dates: start: 20220209
  55. BUTYLSCOPOLAMINE BROMIDE [Concomitant]
     Active Substance: BUTYLSCOPOLAMINE BROMIDE
     Dates: start: 20220119, end: 20220120

REACTIONS (9)
  - Pneumonia [Not Recovered/Not Resolved]
  - Gastric haemorrhage [Recovered/Resolved]
  - Arthralgia [Not Recovered/Not Resolved]
  - Nephrolithiasis [Unknown]
  - Rib fracture [Unknown]
  - Spinal compression fracture [Unknown]
  - Diaphragmatic hernia [Unknown]
  - Cardiomegaly [Unknown]
  - Cholelithiasis [Unknown]

NARRATIVE: CASE EVENT DATE: 20220120
